FAERS Safety Report 20733294 (Version 1)
Quarter: 2022Q2

REPORT INFORMATION
  Report Type: Other
  Country: DK (occurrence: None)
  Receive Date: 20220421
  Receipt Date: 20220421
  Transmission Date: 20220720
  Serious: Yes (Other)
  Sender: FDA-Public Use
  Company Number: DK-Umedica-000256

PATIENT
  Age: 11 Year
  Sex: Male

DRUGS (2)
  1. CARBAMAZEPINE [Suspect]
     Active Substance: CARBAMAZEPINE
     Indication: Sleep related hypermotor epilepsy
     Dosage: 400 MG TWICE DAILY
  2. CARBAMAZEPINE [Suspect]
     Active Substance: CARBAMAZEPINE
     Indication: Sleep related hypermotor epilepsy
     Dosage: 300 MG TWICE DAILY

REACTIONS (2)
  - Epilepsy [Unknown]
  - Therapy partial responder [Unknown]
